FAERS Safety Report 5084700-9 (Version None)
Quarter: 2006Q3

REPORT INFORMATION
  Report Type: 
  Country: None (occurrence: None)
  Receive Date: 20060818
  Receipt Date: 20060818
  Transmission Date: 20061208
  Serious: Yes (Death)
  Sender: FDA-Public Use
  Company Number: None

PATIENT
  Age: 53 Year
  Sex: Female
  Weight: 77.1115 kg

DRUGS (2)
  1. NEXIUM [Suspect]
     Dosage: 40 MG QD PO
     Route: 048
     Dates: start: 20060729, end: 20060803
  2. DOXYCYCLINE [Suspect]
     Dosage: 100 MG QD PO
     Route: 048
     Dates: start: 20060806, end: 20060809

REACTIONS (1)
  - MYOCARDIAL INFARCTION [None]
